FAERS Safety Report 8573099-9 (Version None)
Quarter: 2012Q3

REPORT INFORMATION
  Report Type: 
  Country: None (occurrence: None)
  Receive Date: 20120806
  Receipt Date: 20120726
  Transmission Date: 20120928
  Serious: Yes (Death)
  Sender: FDA-Public Use
  Company Number: US-ACTELION-A-US2012-69377

PATIENT
  Age: 55 Year
  Sex: Female

DRUGS (20)
  1. KLOR-CON [Concomitant]
  2. LEVOTHYROXINE SODIUM [Concomitant]
  3. TIOTROPIUM [Concomitant]
  4. AMITRIPTYLINE HCL [Concomitant]
  5. FERROUS SULFATE TAB [Concomitant]
  6. EPOPROSTENOL SODIUM [Suspect]
     Indication: PULMONARY ARTERIAL HYPERTENSION
     Dosage: 8.5 NG/KG, PER MIN
     Route: 042
     Dates: start: 20120320
  7. COMPAZINE [Concomitant]
  8. FLECTOR [Concomitant]
  9. ULTRAM [Concomitant]
  10. FLUTICASONE PROPIONATE [Concomitant]
  11. FUROSEMIDE [Concomitant]
  12. XOPENEX [Concomitant]
  13. ALBUTEROL [Concomitant]
  14. INSULIN ASPART [Concomitant]
  15. NYSTATIN [Concomitant]
  16. ASPIRIN [Concomitant]
  17. HEPARIN [Concomitant]
  18. LANTUS [Concomitant]
  19. MIRAPEX [Concomitant]
  20. TOPROL-XL [Concomitant]

REACTIONS (1)
  - DEATH [None]
